FAERS Safety Report 24160054 (Version 1)
Quarter: 2024Q3

REPORT INFORMATION
  Report Type: Spontaneous
  Country: IN (occurrence: IN)
  Receive Date: 20240801
  Receipt Date: 20240801
  Transmission Date: 20241016
  Serious: Yes (Death, Life-Threatening, Other)
  Sender: STRIDES
  Company Number: IN-STRIDES ARCOLAB LIMITED-2024SP009416

PATIENT
  Age: 11 Year
  Sex: Male

DRUGS (28)
  1. TACROLIMUS [Suspect]
     Active Substance: TACROLIMUS
     Indication: Prophylaxis against graft versus host disease
     Dosage: UNK
     Route: 065
  2. MYCOPHENOLATE MOFETIL [Suspect]
     Active Substance: MYCOPHENOLATE MOFETIL
     Indication: Prophylaxis against graft versus host disease
     Dosage: UNK
     Route: 065
  3. DOXORUBICIN [Suspect]
     Active Substance: DOXORUBICIN
     Indication: B-cell type acute leukaemia
     Dosage: UNK (2 CYCLES)
     Route: 065
  4. DOXORUBICIN [Suspect]
     Active Substance: DOXORUBICIN
     Indication: TP53 gene mutation
  5. METHOTREXATE [Suspect]
     Active Substance: METHOTREXATE
     Indication: B-cell type acute leukaemia
     Dosage: UNK (HIGH DOSE)
     Route: 065
  6. METHOTREXATE [Suspect]
     Active Substance: METHOTREXATE
     Indication: TP53 gene mutation
  7. CYCLOPHOSPHAMIDE [Suspect]
     Active Substance: CYCLOPHOSPHAMIDE
     Indication: B-cell type acute leukaemia
     Dosage: UNK (2 CYCLES)
     Route: 065
  8. CYCLOPHOSPHAMIDE [Suspect]
     Active Substance: CYCLOPHOSPHAMIDE
     Indication: Prophylaxis against graft versus host disease
     Dosage: UNK
     Route: 065
  9. CYCLOPHOSPHAMIDE [Suspect]
     Active Substance: CYCLOPHOSPHAMIDE
     Indication: TP53 gene mutation
  10. VINCRISTINE [Suspect]
     Active Substance: VINCRISTINE
     Indication: B-cell type acute leukaemia
     Dosage: UNK (2 CYCLES)
     Route: 065
  11. VINCRISTINE [Suspect]
     Active Substance: VINCRISTINE
     Indication: TP53 gene mutation
  12. CYTARABINE [Suspect]
     Active Substance: CYTARABINE
     Indication: B-cell type acute leukaemia
     Dosage: UNK
     Route: 065
  13. CYTARABINE [Suspect]
     Active Substance: CYTARABINE
     Indication: TP53 gene mutation
  14. DEXAMETHASONE [Suspect]
     Active Substance: DEXAMETHASONE
     Indication: B-cell type acute leukaemia
     Dosage: UNK (2 CYCLES)
     Route: 065
  15. DEXAMETHASONE [Suspect]
     Active Substance: DEXAMETHASONE
     Indication: TP53 gene mutation
     Dosage: 6 MILLIGRAM/SQ. METER (DAYS 1, 8, 15, AND 22) (INJECTION)
     Route: 065
  16. VENETOCLAX [Suspect]
     Active Substance: VENETOCLAX
     Indication: B-cell type acute leukaemia
     Dosage: 100 MILLIGRAM (DAYS 1-7)
     Route: 065
  17. VENETOCLAX [Suspect]
     Active Substance: VENETOCLAX
     Indication: TP53 gene mutation
  18. BORTEZOMIB [Suspect]
     Active Substance: BORTEZOMIB
     Indication: B-cell type acute leukaemia
     Dosage: 1.3 MILLIGRAM/SQ. METER (DAYS 1, 4, 8 AND 11)
     Route: 065
  19. BORTEZOMIB [Suspect]
     Active Substance: BORTEZOMIB
     Indication: TP53 gene mutation
  20. INOTUZUMAB OZOGAMICIN [Suspect]
     Active Substance: INOTUZUMAB OZOGAMICIN
     Indication: B-cell type acute leukaemia
     Dosage: 0.8 MILLIGRAM/SQ. METER (ON DAY 1; DAYS 1, 8, AND 15)
     Route: 065
  21. INOTUZUMAB OZOGAMICIN [Suspect]
     Active Substance: INOTUZUMAB OZOGAMICIN
     Indication: TP53 gene mutation
     Dosage: 0.5 MILLIGRAM/SQ. METER (ON DAYS 8 AND 15; DAYS 1, 8, AND 15)
     Route: 065
  22. RITUXIMAB [Suspect]
     Active Substance: RITUXIMAB
     Indication: B-cell type acute leukaemia
     Dosage: 375 MILLIGRAM/SQ. METER (DAYS 1, 8, 15, AND 22)
     Route: 065
  23. RITUXIMAB [Suspect]
     Active Substance: RITUXIMAB
     Indication: TP53 gene mutation
  24. FLUDARABINE [Suspect]
     Active Substance: FLUDARABINE PHOSPHATE
     Indication: B-cell type acute leukaemia
     Dosage: 30 MILLIGRAM/SQ. METER (30 MG/M2 ? 5 DAYS)
     Route: 065
  25. FLUDARABINE [Suspect]
     Active Substance: FLUDARABINE PHOSPHATE
     Indication: TP53 gene mutation
  26. TREOSULFAN [Suspect]
     Active Substance: TREOSULFAN
     Indication: B-cell type acute leukaemia
     Dosage: 14 GRAM PER SQUARE METRE (14 G/M2 ? 3 DAYS)
     Route: 065
  27. TREOSULFAN [Suspect]
     Active Substance: TREOSULFAN
     Indication: TP53 gene mutation
  28. POSACONAZOLE [Concomitant]
     Active Substance: POSACONAZOLE
     Indication: Product used for unknown indication
     Dosage: 300 MILLIGRAM (DAYS 1-7)
     Route: 065

REACTIONS (5)
  - Graft versus host disease in gastrointestinal tract [Fatal]
  - Graft versus host disease in skin [Fatal]
  - Cytomegalovirus infection reactivation [Unknown]
  - Therapy non-responder [Unknown]
  - Off label use [Unknown]
